FAERS Safety Report 6843833-4 (Version None)
Quarter: 2010Q3

REPORT INFORMATION
  Report Type: 
  Country: None (occurrence: None)
  Receive Date: 20100714
  Receipt Date: 20100714
  Transmission Date: 20110219
  Serious: No
  Sender: FDA-Public Use
  Company Number: None

PATIENT
  Age: 69 Year
  Sex: Male
  Weight: 70 kg

DRUGS (1)
  1. LAMOTRIGINE [Suspect]
     Indication: CONVULSION
     Dates: start: 20100602, end: 20100609

REACTIONS (4)
  - AURA [None]
  - CONVULSION [None]
  - HALLUCINATION, VISUAL [None]
  - PRODUCT SUBSTITUTION ISSUE [None]
